FAERS Safety Report 11735046 (Version 3)
Quarter: 2015Q4

REPORT INFORMATION
  Report Type: Report from Study
  Country: US (occurrence: US)
  Receive Date: 20151113
  Receipt Date: 20151211
  Transmission Date: 20160304
  Serious: Yes (Death, Hospitalization)
  Sender: FDA-Public Use
  Company Number: US-BAYER-2015-345284

PATIENT
  Age: 63 Year
  Sex: Male
  Weight: 68 kg

DRUGS (34)
  1. OMEPRAZOLE. [Concomitant]
     Active Substance: OMEPRAZOLE
     Dosage: 20 MG, QD
     Route: 048
  2. OXYCODONE [Concomitant]
     Active Substance: OXYCODONE
     Indication: PAIN
     Dosage: 10 MG, Q 4H PRN
     Route: 048
  3. RIFAXIMIN [Concomitant]
     Active Substance: RIFAXIMIN
     Dosage: 550 MG, BID
     Route: 048
  4. LACTULOSE. [Concomitant]
     Active Substance: LACTULOSE
     Dosage: 15 MG, QID, PRN
     Route: 048
  5. SENNA [Concomitant]
     Active Substance: SENNA LEAF\SENNOSIDES\SENNOSIDES A AND B
     Indication: CONSTIPATION
     Dosage: 8.6 MG, BID, PRN
     Route: 048
  6. FERROUS SULFATE [Concomitant]
     Active Substance: FERROUS SULFATE\FERROUS SULFATE, DRIED
     Dosage: 325 MG, QD
     Route: 048
  7. OMEPRAZOLE. [Concomitant]
     Active Substance: OMEPRAZOLE
     Dosage: 20 MG, BID
     Route: 048
  8. ONDANSETRON HYDROCHLORIDE. [Concomitant]
     Active Substance: ONDANSETRON HYDROCHLORIDE
     Indication: VOMITING
     Dosage: 8 MG, QD
     Route: 048
  9. SORAFENIB (RAF KINASE INHIBITOR) [Suspect]
     Active Substance: SORAFENIB
     Indication: HEPATOCELLULAR CARCINOMA
     Dosage: 400 MG, QD, FOR 28 DAYS, CYCLE 20
     Route: 048
     Dates: start: 20151117
  10. LORAZEPAM. [Concomitant]
     Active Substance: LORAZEPAM
     Indication: HICCUPS
     Dosage: 0.25 MG, (1 MG TABLET TAKE 1) DAILY PRN
     Route: 048
  11. OXYCONTIN [Concomitant]
     Active Substance: OXYCODONE HYDROCHLORIDE
     Dosage: 10 MG, Q AM
     Route: 048
  12. SORAFENIB (RAF KINASE INHIBITOR) [Suspect]
     Active Substance: SORAFENIB
     Indication: HEPATOCELLULAR CARCINOMA
     Dosage: 400 MG, QD, FOR 28 DAYS
     Route: 048
     Dates: start: 20151020
  13. DOCUSATE SODIUM. [Concomitant]
     Active Substance: DOCUSATE SODIUM
     Indication: CONSTIPATION
     Dosage: 100 MG, BID, PRN
     Route: 048
  14. ONDANSETRON HYDROCHLORIDE. [Concomitant]
     Active Substance: ONDANSETRON HYDROCHLORIDE
     Indication: NAUSEA
     Dosage: 8 MG, Q8H PRN
     Route: 048
  15. NEULASTA [Concomitant]
     Active Substance: PEGFILGRASTIM
     Dosage: 6 MG/0.6ML, QD
     Route: 058
  16. REGLAN [Concomitant]
     Active Substance: METOCLOPRAMIDE HYDROCHLORIDE
     Dosage: 10 MG, BID
     Route: 048
  17. FOLFOX [Suspect]
     Active Substance: FLUOROURACIL\LEUCOVORIN CALCIUM\OXALIPLATIN
     Indication: HEPATOCELLULAR CARCINOMA
     Dosage: 900 MG/M2, DAY 1, 15
     Route: 042
     Dates: start: 20151020
  18. FOLFOX [Suspect]
     Active Substance: FLUOROURACIL\LEUCOVORIN CALCIUM\OXALIPLATIN
     Indication: HEPATOCELLULAR CARCINOMA
     Dosage: 1163.75 MG/M2 INTRAVENOUS EVERY 2 WEEKS, CYCLE 20
     Route: 042
     Dates: start: 20151117
  19. FOLFOX [Suspect]
     Active Substance: FLUOROURACIL\LEUCOVORIN CALCIUM\OXALIPLATIN
     Indication: HEPATOCELLULAR CARCINOMA
     Dosage: UNK
     Dates: start: 20150113, end: 20151117
  20. SPIRONOLACTONE. [Concomitant]
     Active Substance: SPIRONOLACTONE
     Dosage: 25 MG, QD
     Route: 048
  21. SORAFENIB (RAF KINASE INHIBITOR) [Suspect]
     Active Substance: SORAFENIB
     Indication: HEPATOCELLULAR CARCINOMA
     Dosage: 400 MG, QD
     Route: 048
  22. SORAFENIB (RAF KINASE INHIBITOR) [Suspect]
     Active Substance: SORAFENIB
     Indication: HEPATOCELLULAR CARCINOMA
     Dosage: UNK
     Dates: start: 20150113, end: 20151117
  23. FOLFOX [Suspect]
     Active Substance: FLUOROURACIL\LEUCOVORIN CALCIUM\OXALIPLATIN
     Indication: HEPATOCELLULAR CARCINOMA
     Dosage: DAY 1 AND 15
     Route: 042
     Dates: start: 20150602
  24. AMLODIPINE [Concomitant]
     Active Substance: AMLODIPINE BESYLATE
     Dosage: 5 MG, QD
     Route: 048
  25. BACLOFEN. [Concomitant]
     Active Substance: BACLOFEN
     Indication: HICCUPS
     Dosage: 0.5-1, QID PRN
     Route: 048
  26. CELEXA [Concomitant]
     Active Substance: CITALOPRAM HYDROBROMIDE
     Dosage: 40 MG, QD
     Route: 048
  27. NEUTRAL [Concomitant]
     Dosage: 500 MG, TID
     Route: 048
  28. CELEXA [Concomitant]
     Active Substance: CITALOPRAM HYDROBROMIDE
     Dosage: 20 MG, QD
     Route: 048
  29. REMERON [Concomitant]
     Active Substance: MIRTAZAPINE
     Dosage: 15 MG, HS
     Route: 048
  30. DECADRON [DEXAMETHASONE] [Concomitant]
     Dosage: 4 MG, QD, AS DIRECT
     Route: 048
  31. FUROSEMIDE. [Concomitant]
     Active Substance: FUROSEMIDE
     Dosage: 40 MG, QD
     Route: 048
  32. LORAZEPAM. [Concomitant]
     Active Substance: LORAZEPAM
     Indication: HICCUPS
     Dosage: 0.25 MG, QID, PRN
     Route: 048
  33. OXYCONTIN [Concomitant]
     Active Substance: OXYCODONE HYDROCHLORIDE
     Dosage: 10 MG, BID
     Route: 048
  34. VALTREX [Concomitant]
     Active Substance: VALACYCLOVIR HYDROCHLORIDE
     Dosage: 500 MG, Q8HR
     Route: 048

REACTIONS (10)
  - Pneumonia [None]
  - Hepatic encephalopathy [None]
  - Lung disorder [Not Recovered/Not Resolved]
  - Hypoxia [None]
  - Dyspnoea [None]
  - Death [Fatal]
  - Confusional state [None]
  - Asthenia [None]
  - Atypical pneumonia [Not Recovered/Not Resolved]
  - Dyspnoea [Not Recovered/Not Resolved]

NARRATIVE: CASE EVENT DATE: 20150607
